FAERS Safety Report 12478749 (Version 1)
Quarter: 2016Q2

REPORT INFORMATION
  Report Type: Spontaneous
  Country: US (occurrence: US)
  Receive Date: 20160619
  Receipt Date: 20160619
  Transmission Date: 20160815
  Serious: No
  Sender: FDA-Public Use
  Company Number: US-ASTRAZENECA-2011SE78698

PATIENT
  Age: 85 Year
  Sex: Male

DRUGS (2)
  1. CRESTOR [Suspect]
     Active Substance: ROSUVASTATIN CALCIUM
     Route: 048
  2. ADVERT [Concomitant]

REACTIONS (5)
  - Malaise [Unknown]
  - Dizziness [Unknown]
  - Food poisoning [Unknown]
  - Arthralgia [Unknown]
  - Influenza [Unknown]
